FAERS Safety Report 18619692 (Version 1)
Quarter: 2020Q4

REPORT INFORMATION
  Report Type: Spontaneous
  Country: US (occurrence: US)
  Receive Date: 20201215
  Receipt Date: 20201215
  Transmission Date: 20210114
  Serious: Yes (Other)
  Sender: FDA-Public Use
  Company Number: US-PFIZER INC-2020483325

PATIENT
  Age: 24 Year
  Sex: Female
  Weight: 98 kg

DRUGS (12)
  1. BUPIVACAINE HCL [Suspect]
     Active Substance: BUPIVACAINE HYDROCHLORIDE
     Indication: ANAESTHESIA
     Dosage: 11.25 MG (0.75% + DEXTROSE 8.5%)
     Route: 037
  2. LACTATED RINGERS SOLUTION [Concomitant]
     Active Substance: CALCIUM CHLORIDE\POTASSIUM CHLORIDE\SODIUM CHLORIDE\SODIUM LACTATE
     Dosage: 750 ML (INFUSION)
     Route: 042
  3. LACTATED RINGERS SOLUTION [Concomitant]
     Active Substance: CALCIUM CHLORIDE\POTASSIUM CHLORIDE\SODIUM CHLORIDE\SODIUM LACTATE
     Dosage: 500 ML
     Route: 042
  4. MEPERIDINE HCL [Concomitant]
     Active Substance: MEPERIDINE HYDROCHLORIDE
     Dosage: 50 MG, SINGLE
     Route: 042
  5. FENTANYL CITRATE. [Suspect]
     Active Substance: FENTANYL CITRATE
     Dosage: 1 UG/ML (CONTINUOUS INFUSION, THIS MIXTURE WAS INFUSED AT A RATE OF 16 ML/H)
     Route: 008
  6. METHYLDOPA. [Concomitant]
     Active Substance: METHYLDOPA
     Dosage: 500 MG, 4X/DAY
     Route: 048
  7. DEXTROSE. [Concomitant]
     Active Substance: DEXTROSE
     Dosage: UNK
  8. PROMETHAZINE HCL [Concomitant]
     Active Substance: PROMETHAZINE HYDROCHLORIDE
     Dosage: 25 MG, SINGLE
     Route: 042
  9. FENTANYL CITRATE. [Suspect]
     Active Substance: FENTANYL CITRATE
     Dosage: 25 UG (MIXED TO 3 ML WITH CEREBROSPINAL FLUID VIA A 25- GAUGE WHITACRE NEEDLE INTO THE SUBARACHNOID
  10. MAGNESIUM SULPHATE [MAGNESIUM SULFATE] [Concomitant]
     Active Substance: MAGNESIUM SULFATE
     Dosage: 2 G (PER HR INFUSION)
  11. FENTANYL CITRATE. [Suspect]
     Active Substance: FENTANYL CITRATE
     Indication: ANAESTHESIA
     Dosage: 100 UG (2 ML)
     Route: 008
  12. BICITRA [CITRIC ACID;SODIUM CITRATE] [Concomitant]
     Dosage: 15 ML
     Route: 048

REACTIONS (4)
  - Dyspnoea [Recovered/Resolved]
  - Muscular weakness [Recovered/Resolved]
  - Off label use [Unknown]
  - Product use issue [Unknown]
